FAERS Safety Report 7742778-5 (Version None)
Quarter: 2011Q3

REPORT INFORMATION
  Report Type: 
  Country: None (occurrence: None)
  Receive Date: 20110831
  Receipt Date: 20110819
  Transmission Date: 20111222
  Serious: Yes (Hospitalization, Other)
  Sender: FDA-Public Use
  Company Number: 2011SP012497

PATIENT
  Age: 26 Year
  Sex: Female
  Weight: 80.7403 kg

DRUGS (1)
  1. NUVARING [Suspect]
     Indication: CONTRACEPTION
     Dosage: 1 DF; QM;
     Dates: end: 20090403

REACTIONS (11)
  - BLOOD CHOLESTEROL INCREASED [None]
  - TRICUSPID VALVE INCOMPETENCE [None]
  - MENTAL DISORDER [None]
  - PULMONARY INFARCTION [None]
  - PULMONARY EMBOLISM [None]
  - HYPERCOAGULATION [None]
  - PNEUMONIA [None]
  - ANAEMIA [None]
  - EMOTIONAL DISORDER [None]
  - VAGINAL DISCHARGE [None]
  - UPPER RESPIRATORY TRACT INFECTION [None]
